FAERS Safety Report 20851082 (Version 5)
Quarter: 2023Q1

REPORT INFORMATION
  Report Type: Spontaneous
  Country: US (occurrence: US)
  Receive Date: 20220519
  Receipt Date: 20230203
  Transmission Date: 20230417
  Serious: No
  Sender: FDA-Public Use
  Company Number: US-KARYOPHARM-2022KPT000545

PATIENT

DRUGS (23)
  1. XPOVIO [Suspect]
     Active Substance: SELINEXOR
     Indication: Diffuse large B-cell lymphoma
     Dosage: 60 MG, 2X/WEEK
     Route: 048
     Dates: start: 20220504, end: 202208
  2. XPOVIO [Suspect]
     Active Substance: SELINEXOR
     Dosage: 40 MG, 2X/WEEK
     Route: 048
     Dates: start: 2022
  3. XPOVIO [Suspect]
     Active Substance: SELINEXOR
     Dosage: 40 MG, WEEKLY
     Route: 048
     Dates: start: 2022
  4. GABAPENTIN [Concomitant]
     Active Substance: GABAPENTIN
  5. INDERAL LA [Concomitant]
     Active Substance: PROPRANOLOL HYDROCHLORIDE
  6. LANTUS [Concomitant]
     Active Substance: INSULIN GLARGINE
  7. METFORMIN [Concomitant]
     Active Substance: METFORMIN HYDROCHLORIDE
  8. METHOCARBAMOL [Concomitant]
     Active Substance: METHOCARBAMOL
  9. MORPHINE SULFATE [Concomitant]
     Active Substance: MORPHINE SULFATE
  10. MUPIROCIN [Concomitant]
     Active Substance: MUPIROCIN
  11. NOVOLOG [Concomitant]
     Active Substance: INSULIN ASPART
  12. PERCOCET [Concomitant]
     Active Substance: ACETAMINOPHEN\OXYCODONE HYDROCHLORIDE
  13. DICLOFENAC [Concomitant]
     Active Substance: DICLOFENAC
     Route: 061
  14. REQUIP [Concomitant]
     Active Substance: ROPINIROLE HYDROCHLORIDE
  15. TRAZODONE [Concomitant]
     Active Substance: TRAZODONE HYDROCHLORIDE
  16. TRESIBA [Concomitant]
     Active Substance: INSULIN DEGLUDEC
  17. ZOFRAN [Concomitant]
     Active Substance: ONDANSETRON HYDROCHLORIDE
  18. BUPROPION HYDROCHLORIDE XL [Concomitant]
     Active Substance: BUPROPION HYDROCHLORIDE
  19. EFFIENT [Concomitant]
     Active Substance: PRASUGREL HYDROCHLORIDE
  20. ESCITALOPRAM [Concomitant]
     Active Substance: ESCITALOPRAM OXALATE
  21. FUROSEMIDE [Concomitant]
     Active Substance: FUROSEMIDE
  22. LOSARTAN [Concomitant]
     Active Substance: LOSARTAN
  23. FOLIC ACID [Concomitant]
     Active Substance: FOLIC ACID

REACTIONS (18)
  - Muscular weakness [Not Recovered/Not Resolved]
  - Pain [Unknown]
  - Ageusia [Unknown]
  - Insomnia [Unknown]
  - Pain in extremity [Unknown]
  - Renal function test abnormal [Unknown]
  - Somnolence [Unknown]
  - Bone pain [Not Recovered/Not Resolved]
  - Muscle spasms [Unknown]
  - Cough [Unknown]
  - Hypoaesthesia [Unknown]
  - Motor dysfunction [Not Recovered/Not Resolved]
  - Oedema peripheral [Unknown]
  - Myalgia [Unknown]
  - Nausea [Not Recovered/Not Resolved]
  - Decreased appetite [Not Recovered/Not Resolved]
  - Fatigue [Not Recovered/Not Resolved]
  - Vomiting [Unknown]

NARRATIVE: CASE EVENT DATE: 20220101
